FAERS Safety Report 23102235 (Version 1)
Quarter: 2023Q4

REPORT INFORMATION
  Report Type: Spontaneous
  Country: US (occurrence: US)
  Receive Date: 20231025
  Receipt Date: 20231025
  Transmission Date: 20240109
  Serious: Yes (Hospitalization, Other)
  Sender: FDA-Public Use
  Company Number: US-ABBVIE-5458314

PATIENT
  Sex: Male

DRUGS (1)
  1. SKYRIZI [Suspect]
     Active Substance: RISANKIZUMAB-RZAA
     Indication: Product used for unknown indication
     Route: 058
     Dates: end: 20230401

REACTIONS (12)
  - Epidural injection [Unknown]
  - Dehydration [Unknown]
  - Intervertebral disc protrusion [Unknown]
  - Hospitalisation [Recovered/Resolved]
  - Nerve compression [Unknown]
  - Blood pressure abnormal [Unknown]
  - Arthritis [Unknown]
  - Chapped lips [Unknown]
  - Mobility decreased [Unknown]
  - Musculoskeletal disorder [Unknown]
  - Fall [Unknown]
  - Sciatica [Unknown]
